FAERS Safety Report 14973389 (Version 1)
Quarter: 2018Q2

REPORT INFORMATION
  Report Type: Spontaneous
  Country: JP (occurrence: JP)
  Receive Date: 20180605
  Receipt Date: 20180605
  Transmission Date: 20180711
  Serious: Yes (Hospitalization)
  Sender: FDA-Public Use
  Company Number: PHHY2012JP093416

PATIENT
  Age: 83 Year
  Sex: Female

DRUGS (3)
  1. EXELON PATCH [Suspect]
     Active Substance: RIVASTIGMINE
     Indication: DEMENTIA ALZHEIMER^S TYPE
     Dosage: 4.5 MG, QD
     Route: 062
     Dates: start: 20120813, end: 20120920
  2. EXELON PATCH [Suspect]
     Active Substance: RIVASTIGMINE
     Dosage: 4.5 MG, QD
     Route: 062
     Dates: start: 20121004, end: 20121031
  3. EXELON PATCH [Suspect]
     Active Substance: RIVASTIGMINE
     Dosage: 9 MG, QD
     Route: 062
     Dates: start: 20121101

REACTIONS (2)
  - Cardiac failure congestive [Recovered/Resolved]
  - Asthenia [Recovered/Resolved]

NARRATIVE: CASE EVENT DATE: 20120920
